FAERS Safety Report 24341873 (Version 1)
Quarter: 2024Q3

REPORT INFORMATION
  Report Type: Report from Study
  Country: JP (occurrence: JP)
  Receive Date: 20240920
  Receipt Date: 20240920
  Transmission Date: 20241017
  Serious: Yes (Death, Hospitalization)
  Sender: RECORDATI
  Company Number: JP-RECORDATI RARE DISEASE INC.-2024003691

PATIENT

DRUGS (6)
  1. CARBAGLU [Suspect]
     Active Substance: CARGLUMIC ACID
     Indication: Hyperammonaemia
     Dosage: 300 MILLIGRAM, TID (200 MG/KG/DAY)
     Dates: start: 20240119, end: 20240130
  2. CARBAGLU [Suspect]
     Active Substance: CARGLUMIC ACID
     Dosage: 350 MILLIGRAM, TID (250 MG/KG/DAY)
     Dates: start: 20240131, end: 20240815
  3. LEVOCARNITINE [Concomitant]
     Active Substance: LEVOCARNITINE
     Indication: Product used for unknown indication
     Dosage: 60 MG/KG (10%)
     Route: 048
     Dates: start: 20240119, end: 20240815
  4. BUPHENYL [Concomitant]
     Active Substance: SODIUM PHENYLBUTYRATE
     Indication: Product used for unknown indication
     Dosage: 400 MG/KG (TABLET)
     Route: 048
     Dates: start: 20240119, end: 20240815
  5. SODIUM BENZOATE [Concomitant]
     Active Substance: SODIUM BENZOATE
     Indication: Product used for unknown indication
     Dosage: 250 MG/KG
     Route: 048
     Dates: start: 20240119, end: 20240220
  6. CITRULLINE [Concomitant]
     Active Substance: CITRULLINE
     Indication: Product used for unknown indication
     Dosage: 250 MG/KG
     Route: 048
     Dates: start: 20240119

REACTIONS (2)
  - Infection [Fatal]
  - Therapeutic product effect incomplete [Recovered/Resolved]

NARRATIVE: CASE EVENT DATE: 20240101
